FAERS Safety Report 9801069 (Version 1)
Quarter: 2014Q1

REPORT INFORMATION
  Report Type: Report from Study
  Country: US (occurrence: US)
  Receive Date: 20140107
  Receipt Date: 20140107
  Transmission Date: 20141002
  Serious: Yes (Death, Hospitalization)
  Sender: FDA-Public Use
  Company Number: US-SA-2014SA000932

PATIENT
  Age: 68 Year
  Sex: Male
  Weight: 36 kg

DRUGS (8)
  1. JEVTANA [Suspect]
     Route: 065
     Dates: start: 20131114, end: 20131114
  2. JEVTANA [Suspect]
     Route: 065
     Dates: start: 20131205, end: 20131205
  3. OCTREOTIDE [Suspect]
     Indication: PROSTATE CANCER
     Dosage: FREQUENCY - 1 Q 4 WEEKS
     Route: 030
     Dates: start: 20131114, end: 20131114
  4. OCTREOTIDE [Suspect]
     Indication: PROSTATE CANCER
     Route: 030
     Dates: start: 20131127, end: 20131127
  5. PREDNISONE [Suspect]
     Route: 048
     Dates: start: 20131114
  6. NOREPINEPHRINE [Concomitant]
  7. ZOSYN [Concomitant]
  8. LEVOFLOXACIN [Concomitant]

REACTIONS (1)
  - Death [Fatal]
